FAERS Safety Report 9541318 (Version 8)
Quarter: 2014Q4

REPORT INFORMATION
  Report Type: Report from Study
  Country: CA (occurrence: CA)
  Receive Date: 20130923
  Receipt Date: 20141020
  Transmission Date: 20150529
  Serious: Yes (Other)
  Sender: FDA-Public Use
  Company Number: CA-ROCHE-1266649

PATIENT
  Age: 55 Year
  Sex: Male
  Weight: 90.7 kg

DRUGS (11)
  1. ACTEMRA [Suspect]
     Active Substance: TOCILIZUMAB
     Indication: RHEUMATOID ARTHRITIS
     Dosage: HE HAD LAST INFUSION OF TOCILIZUMAB ON 11/SEP/2013??HE RECIEVED THE LAST TOCILIZUMAB INFUSION ON THE
     Route: 042
     Dates: start: 20130813
  2. IBUPROFEN. [Concomitant]
     Active Substance: IBUPROFEN
  3. NAPROXEN EC [Suspect]
     Active Substance: NAPROXEN
     Indication: PRODUCT USED FOR UNKNOWN INDICATION
     Route: 065
  4. TYLENOL [Concomitant]
     Active Substance: ACETAMINOPHEN
  5. LANSOPRAZOLE. [Concomitant]
     Active Substance: LANSOPRAZOLE
  6. ACTEMRA [Suspect]
     Active Substance: TOCILIZUMAB
     Indication: UVEITIS
  7. PREDNISOLONE OPHTHALMIC [Concomitant]
     Dosage: RIGHT EYE
     Route: 065
  8. METHOTREXATE [Concomitant]
     Active Substance: METHOTREXATE
  9. SILDENAFIL. [Concomitant]
     Active Substance: SILDENAFIL
  10. RISEDRONATE [Concomitant]
     Active Substance: RISEDRONATE SODIUM
  11. FOLIC ACID. [Concomitant]
     Active Substance: FOLIC ACID
     Dosage: 8 TAB, DECREASE DOSAGE EVERY WEEK
     Route: 048

REACTIONS (8)
  - Arthralgia [Unknown]
  - Product use issue [Unknown]
  - Cystoscopy abnormal [Unknown]
  - Pain [Unknown]
  - Urinary tract infection [Unknown]
  - Inflammation [Recovered/Resolved]
  - Joint effusion [Unknown]
  - Bladder disorder [Unknown]

NARRATIVE: CASE EVENT DATE: 20130913
